FAERS Safety Report 5261277-6 (Version None)
Quarter: 2007Q1

REPORT INFORMATION
  Report Type: 
  Country: None (occurrence: None)
  Receive Date: 20070309
  Receipt Date: 20070302
  Transmission Date: 20070707
  Serious: Yes (Hospitalization, Other)
  Sender: FDA-Public Use
  Company Number: US-PFIZER INC-2007017067

PATIENT
  Sex: Male

DRUGS (12)
  1. CELEBREX [Suspect]
     Indication: OSTEOARTHRITIS
     Dates: start: 20030101, end: 20040101
  2. BEXTRA [Interacting]
     Indication: OSTEOARTHRITIS
     Dates: start: 20030101, end: 20030101
  3. ALTACE [Interacting]
     Indication: HYPERTENSION
  4. ALTACE [Interacting]
     Indication: BLOOD CHOLESTEROL INCREASED
  5. CRESTOR [Concomitant]
  6. PLAVIX [Concomitant]
  7. COREG [Concomitant]
  8. DIOVAN [Concomitant]
  9. NEXIUM [Concomitant]
  10. VICODIN [Concomitant]
  11. LORCET-HD [Concomitant]
  12. ACETYLSALICYLIC ACID SRT [Concomitant]

REACTIONS (8)
  - CARDIAC FAILURE CONGESTIVE [None]
  - COLON CANCER [None]
  - DRUG INTERACTION [None]
  - HEART RATE IRREGULAR [None]
  - OSTEOPOROSIS [None]
  - RASH [None]
  - SKIN FISSURES [None]
  - STAPHYLOCOCCAL INFECTION [None]
